FAERS Safety Report 15001132 (Version 1)
Quarter: 2018Q2

REPORT INFORMATION
  Report Type: Spontaneous
  Country: PT (occurrence: PT)
  Receive Date: 20180612
  Receipt Date: 20180612
  Transmission Date: 20180711
  Serious: Yes (Other)
  Sender: FDA-Public Use
  Company Number: PT-009507513-1806PRT001655

PATIENT
  Age: 71 Year
  Sex: Female

DRUGS (1)
  1. MOMETASONE FUROATE. [Suspect]
     Active Substance: MOMETASONE FUROATE
     Route: 055
     Dates: start: 2016

REACTIONS (5)
  - Muscular weakness [Recovered/Resolved]
  - Presyncope [Recovered/Resolved]
  - Oropharyngeal oedema [Recovered/Resolved]
  - Rash macular [Recovered/Resolved]
  - Tongue oedema [Recovered/Resolved]

NARRATIVE: CASE EVENT DATE: 2016
